FAERS Safety Report 5514795-7 (Version None)
Quarter: 2007Q4

REPORT INFORMATION
  Report Type: 
  Country: None (occurrence: None)
  Receive Date: 20071113
  Receipt Date: 20071107
  Transmission Date: 20080405
  Serious: Yes (Hospitalization)
  Sender: FDA-Public Use
  Company Number: US-SHR-US-2007-042615

PATIENT
  Age: 72 Year
  Sex: Female

DRUGS (8)
  1. MAGNEVIST [Suspect]
     Indication: ANGIOGRAM
     Dosage: 35 ML, 1 DOSE
     Route: 042
     Dates: start: 20071029, end: 20071029
  2. MAGNEVIST [Suspect]
     Dosage: 35 ML, 1 DOSE
     Route: 042
     Dates: start: 20071102, end: 20071102
  3. PREVACID [Concomitant]
  4. ALPRAZOLAM [Concomitant]
  5. ^CLOPIDIDRIL^ [Concomitant]
  6. PRAVASTATIN [Concomitant]
  7. ADVAIR DISKUS 100/50 [Concomitant]
  8. HUMULIN R [Concomitant]

REACTIONS (1)
  - RENAL FAILURE [None]
